FAERS Safety Report 15559484 (Version 1)
Quarter: 2018Q4

REPORT INFORMATION
  Report Type: Spontaneous
  Country: US (occurrence: US)
  Receive Date: 20181029
  Receipt Date: 20181029
  Transmission Date: 20190205
  Serious: No
  Sender: FDA-Public Use
  Company Number: US-009507513-1810USA008009

PATIENT
  Age: 17 Year
  Sex: Female
  Weight: 81.18 kg

DRUGS (2)
  1. CLARITIN [Concomitant]
     Active Substance: LORATADINE
     Indication: ANTIALLERGIC THERAPY
     Dosage: UNK
  2. NEXPLANON [Suspect]
     Active Substance: ETONOGESTREL
     Indication: CONTRACEPTION
     Dosage: LEFT ARM-IMPLANT, 3 YEARS
     Route: 059
     Dates: start: 20181012

REACTIONS (4)
  - Implant site pruritus [Not Recovered/Not Resolved]
  - Implant site erythema [Not Recovered/Not Resolved]
  - Implant site bruising [Not Recovered/Not Resolved]
  - Implant site pain [Not Recovered/Not Resolved]

NARRATIVE: CASE EVENT DATE: 20181012
